FAERS Safety Report 11339778 (Version 1)
Quarter: 2015Q3

REPORT INFORMATION
  Report Type: Spontaneous
  Country: IT (occurrence: IT)
  Receive Date: 20150805
  Receipt Date: 20150805
  Transmission Date: 20151125
  Serious: Yes (Hospitalization)
  Sender: FDA-Public Use
  Company Number: IT-ELI_LILLY_AND_COMPANY-IT201507011061

PATIENT
  Age: 43 Year
  Sex: Female

DRUGS (4)
  1. CYMBALTA [Suspect]
     Active Substance: DULOXETINE HYDROCHLORIDE
     Dosage: 60MG X 8 CAPSULES
     Dates: start: 20150723, end: 20150723
  2. XANAX [Suspect]
     Active Substance: ALPRAZOLAM
     Indication: PRODUCT USED FOR UNKNOWN INDICATION
     Dosage: 0.25MG/ UNK
     Dates: start: 20150501
  3. XANAX [Suspect]
     Active Substance: ALPRAZOLAM
     Dosage: 0.25MG X 6 TABLETS
     Dates: start: 20150723, end: 20150723
  4. CYMBALTA [Suspect]
     Active Substance: DULOXETINE HYDROCHLORIDE
     Indication: PRODUCT USED FOR UNKNOWN INDICATION
     Dosage: 60MG, UNK
     Dates: start: 20150101

REACTIONS (4)
  - Loss of consciousness [Recovering/Resolving]
  - Intentional overdose [Recovering/Resolving]
  - Major depression [Recovering/Resolving]
  - Drug abuse [Recovering/Resolving]

NARRATIVE: CASE EVENT DATE: 20150723
